FAERS Safety Report 7497635-9 (Version None)
Quarter: 2011Q2

REPORT INFORMATION
  Report Type: 
  Country: None (occurrence: None)
  Receive Date: 20110523
  Receipt Date: 20110510
  Transmission Date: 20111010
  Serious: Yes (Other)
  Sender: FDA-Public Use
  Company Number: JP-MYLANLABS-2011S1009735

PATIENT
  Age: 36 Year
  Sex: Female
  Weight: 32 kg

DRUGS (11)
  1. CLONAZEPAM [Concomitant]
     Indication: EPILEPSY
     Route: 065
  2. VECURONIUM BROMIDE [Interacting]
     Indication: ANAESTHESIA
     Route: 065
  3. ZONISAMIDE [Concomitant]
     Indication: EPILEPSY
     Dosage: MORNING/EVENING.
     Route: 065
  4. PROPOFOL [Concomitant]
     Indication: ANAESTHESIA
     Route: 065
  5. NITROUS OXIDE [Concomitant]
     Indication: ANAESTHESIA
     Dosage: 2L/MIN-1
     Route: 055
  6. CLONAZEPAM [Concomitant]
     Route: 065
  7. ATROPINE [Concomitant]
     Indication: CARDIOVASCULAR EVENT PROPHYLAXIS
     Route: 065
  8. ZONISAMIDE [Concomitant]
     Route: 065
  9. SEVOFLURANE [Concomitant]
     Indication: ANAESTHESIA
     Route: 055
  10. SEVOFLURANE [Concomitant]
     Dosage: ADJUSTED TO 1.5-2%
     Route: 055
  11. PHENYTOIN [Suspect]
     Indication: EPILEPSY
     Dosage: IN THE EVENING.
     Route: 065

REACTIONS (2)
  - DRUG INTERACTION [None]
  - DRUG EFFECT DECREASED [None]
